FAERS Safety Report 4606202-3 (Version None)
Quarter: 2005Q1

REPORT INFORMATION
  Report Type: 
  Country: None (occurrence: None)
  Receive Date: 20050115
  Receipt Date: 20040809
  Transmission Date: 20050727
  Serious: Yes (Other)
  Sender: FDA-Public Use
  Company Number: A03200402637

PATIENT
  Age: 56 Year
  Sex: Female
  Weight: 86.1834 kg

DRUGS (10)
  1. AMBIEN [Suspect]
     Indication: INSOMNIA
     Dosage: 5 MG PRN - ORAL
     Route: 048
     Dates: start: 20030101
  2. FLUTICASONE PROPIONATE [Concomitant]
  3. LEVOTHYROXONE SODIUM [Concomitant]
  4. LANSOPRAZOLE [Concomitant]
  5. CONJUGATED ESTROGENS/MEDROXYPROGESTERONE ACETATE [Concomitant]
  6. ALENDRONATE SODIUM [Concomitant]
     Indication: INSOMNIA
  7. BUDESONIDE [Concomitant]
  8. ALBUTEROL [Concomitant]
  9. FLUTICASONE PROPIONATE [Concomitant]
  10. TRIAMCINOLONE [Concomitant]

REACTIONS (3)
  - DRUG WITHDRAWAL SYNDROME [None]
  - HALLUCINATION [None]
  - NIGHTMARE [None]
